FAERS Safety Report 5684629-9 (Version None)
Quarter: 2008Q1

REPORT INFORMATION
  Report Type: 
  Country: None (occurrence: None)
  Receive Date: 20080328
  Receipt Date: 20070418
  Transmission Date: 20080703
  Serious: No
  Sender: FDA-Public Use
  Company Number: US-BRISTOL-MYERS SQUIBB COMPANY-13752019

PATIENT
  Age: 50 Year
  Sex: Female

DRUGS (5)
  1. ERBITUX [Suspect]
     Indication: COLORECTAL CANCER
     Dates: start: 20061009
  2. AVASTIN [Concomitant]
  3. FLUOROURACIL [Concomitant]
  4. OXALIPLATIN [Concomitant]
  5. FOLINIC ACID [Concomitant]

REACTIONS (4)
  - DEPRESSED MOOD [None]
  - RASH [None]
  - SCAB [None]
  - SCAR [None]
